FAERS Safety Report 21095377 (Version 1)
Quarter: 2022Q3

REPORT INFORMATION
  Report Type: Spontaneous
  Country: US (occurrence: None)
  Receive Date: 20220718
  Receipt Date: 20220718
  Transmission Date: 20221027
  Serious: Yes (Life-Threatening, Hospitalization)
  Sender: FDA-Public Use
  Company Number: None

PATIENT
  Age: 73 Year
  Sex: Male
  Weight: 83.0 kg

DRUGS (9)
  1. INOTERSEN [Suspect]
     Active Substance: INOTERSEN
     Indication: Cardiac amyloidosis
     Dosage: FREQUENCY : WEEKLY;?
     Route: 058
     Dates: start: 20200805, end: 20220411
  2. ALLOPURINOL [Concomitant]
     Active Substance: ALLOPURINOL
  3. TORSEMIDE [Concomitant]
     Active Substance: TORSEMIDE
  4. POTASSIUM CHLORIDE [Concomitant]
     Active Substance: POTASSIUM CHLORIDE
  5. VITAMIN D3 [Concomitant]
     Active Substance: CHOLECALCIFEROL
  6. TAFAMIDIS [Concomitant]
     Active Substance: TAFAMIDIS
  7. APIXABAN [Concomitant]
     Active Substance: APIXABAN
  8. ACETAMINOPHEN [Concomitant]
     Active Substance: ACETAMINOPHEN
  9. LOVASTATIN [Concomitant]
     Active Substance: LOVASTATIN

REACTIONS (8)
  - Oedema peripheral [None]
  - Venous pressure jugular increased [None]
  - Ascites [None]
  - Hepatic cirrhosis [None]
  - Varices oesophageal [None]
  - Dehydration [None]
  - Hepatic encephalopathy [None]
  - Bradycardia [None]

NARRATIVE: CASE EVENT DATE: 20220614
